FAERS Safety Report 7414078-4 (Version None)
Quarter: 2011Q2

REPORT INFORMATION
  Report Type: 
  Country: None (occurrence: None)
  Receive Date: 20110414
  Receipt Date: 20110411
  Transmission Date: 20111010
  Serious: No
  Sender: FDA-Public Use
  Company Number: US-PFIZER INC-2011079842

PATIENT
  Sex: Female
  Weight: 20.862 kg

DRUGS (4)
  1. ZOLOFT [Suspect]
     Indication: BIPOLAR DISORDER
     Dosage: 50 MG, 1X/DAY
     Route: 063
     Dates: start: 20090316
  2. DEPAKOTE [Concomitant]
     Dosage: 500 MG, UNK
     Route: 063
  3. WELLBUTRIN [Concomitant]
     Dosage: 100 MG, UNK
     Route: 063
  4. ZOLOFT [Suspect]
     Dosage: 100 MG, 1X/DAY
     Route: 063
     Dates: start: 20090301, end: 20100728

REACTIONS (3)
  - CRYING [None]
  - SLEEP DISORDER [None]
  - DRUG EXPOSURE VIA BREAST MILK [None]
